FAERS Safety Report 11248284 (Version 1)
Quarter: 2015Q3

REPORT INFORMATION
  Report Type: Spontaneous
  Country: US (occurrence: US)
  Receive Date: 20150708
  Receipt Date: 20150708
  Transmission Date: 20151125
  Serious: No
  Sender: FDA-Public Use
  Company Number: US-ELI_LILLY_AND_COMPANY-US200809002449

PATIENT
  Sex: Female

DRUGS (1)
  1. PROZAC WEEKLY [Suspect]
     Active Substance: FLUOXETINE HYDROCHLORIDE
     Dosage: 90 MG, WEEKLY (1/W)
     Route: 065

REACTIONS (1)
  - Psychiatric decompensation [Unknown]
